FAERS Safety Report 7590259-4 (Version None)
Quarter: 2011Q3

REPORT INFORMATION
  Report Type: 
  Country: None (occurrence: None)
  Receive Date: 20110705
  Receipt Date: 20110701
  Transmission Date: 20111222
  Serious: Yes (Hospitalization)
  Sender: FDA-Public Use
  Company Number: JP-ACTELION-A-CH2011-45355

PATIENT
  Sex: Female
  Weight: 40 kg

DRUGS (11)
  1. TRACLEER [Suspect]
     Indication: PULMONARY ARTERIAL HYPERTENSION
     Dosage: 62.5 MG, QD
     Route: 048
     Dates: start: 20091013, end: 20091016
  2. NICORANDIL [Concomitant]
  3. BERAPROST SODIUM [Concomitant]
  4. MISOPROSTOL [Concomitant]
  5. TORSEMIDE [Concomitant]
  6. ASPIRIN [Concomitant]
  7. TRACLEER [Suspect]
     Dosage: 31.25 MG, QD
     Route: 048
     Dates: start: 20091017, end: 20091020
  8. CLOPIDOGREL [Concomitant]
  9. SARPOGRELATE HYDROCHLORIDE [Concomitant]
  10. RABEPRAZOLE SODIUM [Concomitant]
  11. PREDNISOLONE [Concomitant]

REACTIONS (3)
  - DIARRHOEA [None]
  - NAUSEA [None]
  - PARENTERAL NUTRITION [None]
